FAERS Safety Report 17542965 (Version 1)
Quarter: 2020Q1

REPORT INFORMATION
  Report Type: Spontaneous
  Country: US (occurrence: US)
  Receive Date: 20200316
  Receipt Date: 20200316
  Transmission Date: 20200409
  Serious: No
  Sender: FDA-Public Use
  Company Number: US-AUROBINDO-AUR-APL-2019-045436

PATIENT
  Sex: Male

DRUGS (1)
  1. AMOXICILLIN AND CLAVULANATE POTASSIUM TABLETS USP  875 MG/125 MG [Suspect]
     Active Substance: AMOXICILLIN\CLAVULANATE POTASSIUM
     Indication: PRODUCT USED FOR UNKNOWN INDICATION
     Dosage: UNK, ONE TABLET TWICE A DAY LIKE HALF TABLET
     Route: 065

REACTIONS (6)
  - Wrong technique in product usage process [Unknown]
  - Product lot number issue [Unknown]
  - Product colour issue [Unknown]
  - Product dispensing issue [Unknown]
  - Off label use [Unknown]
  - Product size issue [Unknown]
